FAERS Safety Report 6977504-0 (Version None)
Quarter: 2010Q3

REPORT INFORMATION
  Report Type: 
  Country: None (occurrence: None)
  Receive Date: 20100910
  Receipt Date: 20100901
  Transmission Date: 20110219
  Serious: Yes (Hospitalization)
  Sender: FDA-Public Use
  Company Number: BR-AMGEN-QUU436274

PATIENT
  Age: 55 Year
  Sex: Female
  Weight: 50 kg

DRUGS (3)
  1. ENBREL [Suspect]
     Indication: RHEUMATOID ARTHRITIS
     Route: 058
     Dates: start: 20070601, end: 20090228
  2. PREDNISONE [Concomitant]
     Dosage: 2.5 MG (FREQUENCY UNSPECIFIED)
  3. NAPROXEN [Concomitant]
     Dosage: UNSPECIFIED

REACTIONS (8)
  - ANKLE FRACTURE [None]
  - COMA [None]
  - COORDINATION ABNORMAL [None]
  - MEMORY IMPAIRMENT [None]
  - MENINGITIS [None]
  - PAIN IN EXTREMITY [None]
  - SYNCOPE [None]
  - TUBERCULOSIS [None]
